FAERS Safety Report 18512347 (Version 1)
Quarter: 2020Q4

REPORT INFORMATION
  Report Type: Spontaneous
  Country: IT (occurrence: IT)
  Receive Date: 20201117
  Receipt Date: 20201117
  Transmission Date: 20210114
  Serious: Yes (Other)
  Sender: FDA-Public Use
  Company Number: IT-CURIUM-198800001

PATIENT
  Age: 32 Year
  Sex: Male

DRUGS (1)
  1. TECHNESCAN MAG3 [Suspect]
     Active Substance: TECHNETIUM TC-99M TIATIDE
     Indication: RENAL SCAN
     Route: 065
     Dates: start: 19880222, end: 19880222

REACTIONS (5)
  - Malaise [Recovered/Resolved]
  - Headache [Recovered/Resolved]
  - Visual impairment [Recovered/Resolved]
  - Hyperhidrosis [Recovered/Resolved]
  - Syncope [Recovered/Resolved]

NARRATIVE: CASE EVENT DATE: 19880222
